FAERS Safety Report 6432160-5 (Version None)
Quarter: 2009Q4

REPORT INFORMATION
  Report Type: 
  Country: None (occurrence: None)
  Receive Date: 20091109
  Receipt Date: 20091030
  Transmission Date: 20100525
  Serious: Yes (Hospitalization)
  Sender: FDA-Public Use
  Company Number: JP-NOVOPROD-293144

PATIENT
  Age: 41 Year
  Sex: Male

DRUGS (2)
  1. NOVOLIN R [Suspect]
     Indication: DIABETES MELLITUS
     Dosage: NOT REPORTED
     Route: 058
     Dates: start: 20080701, end: 20091001
  2. AMLODIPIN                          /00972401/ [Concomitant]
     Dosage: UNK

REACTIONS (1)
  - URTICARIA [None]
